FAERS Safety Report 26186818 (Version 1)
Quarter: 2025Q4

REPORT INFORMATION
  Report Type: Spontaneous
  Country: EU (occurrence: EU)
  Receive Date: 20251222
  Receipt Date: 20251222
  Transmission Date: 20260118
  Serious: Yes (Hospitalization, Other)
  Sender: REGENERON
  Company Number: EU-BAYER-2025A165620

PATIENT
  Sex: Female

DRUGS (5)
  1. EYLEA [Suspect]
     Active Substance: AFLIBERCEPT
     Indication: Age-related macular degeneration
     Dosage: EYLEA 114.3 MG PRE-FILLED SYRINGE ONCE 0.07 ML, SOLUTION FOR INJECTION IN PRE-FILLED SYRINGE, 114.3
     Route: 031
     Dates: start: 20251210
  2. EYLEA [Suspect]
     Active Substance: AFLIBERCEPT
     Dosage: 8 MG, ONCE, SOLUTION FOR INJECTION IN PRE-FILLED SYRINGE, 114.3 MG/ML
     Route: 031
  3. EYLEA [Suspect]
     Active Substance: AFLIBERCEPT
     Dosage: 8 MG, ONCE, SOLUTION FOR INJECTION IN PRE-FILLED SYRINGE, 114.3 MG/ML
     Route: 031
  4. EYLEA [Suspect]
     Active Substance: AFLIBERCEPT
     Dosage: 8 MG, ONCE, SOLUTION FOR INJECTION IN PRE-FILLED SYRINGE, 114.3 MG/ML
     Route: 031
  5. UNSPECIFIED INGREDIENT [Concomitant]
     Active Substance: UNSPECIFIED INGREDIENT
     Indication: Neoplasm
     Dosage: UNK

REACTIONS (2)
  - Immunosuppression [Unknown]
  - Non-infectious endophthalmitis [Not Recovered/Not Resolved]

NARRATIVE: CASE EVENT DATE: 20251212
